FAERS Safety Report 5729810-5 (Version None)
Quarter: 2008Q2

REPORT INFORMATION
  Report Type: 
  Country: None (occurrence: None)
  Receive Date: 20080501
  Receipt Date: 20080418
  Transmission Date: 20081010
  Serious: Yes (Hospitalization)
  Sender: FDA-Public Use
  Company Number: 000714

PATIENT
  Age: 66 Year
  Sex: Male

DRUGS (4)
  1. PLETAL [Suspect]
     Indication: INTERMITTENT CLAUDICATION
     Dosage: 100 MG, BID
     Dates: start: 20070507, end: 20070501
  2. RAMIPRIL [Concomitant]
  3. FUROSEMIDE [Concomitant]
  4. INSULIN HUMAN INJECTION, ISOPHANE (INSULIN HUMAN INJECTION, ISOPHANE) [Concomitant]

REACTIONS (2)
  - CONDITION AGGRAVATED [None]
  - HYPERKALAEMIA [None]
